FAERS Safety Report 10151495 (Version 1)
Quarter: 2014Q2

REPORT INFORMATION
  Report Type: Spontaneous
  Country: CA (occurrence: CA)
  Receive Date: 20140503
  Receipt Date: 20140503
  Transmission Date: 20141212
  Serious: Yes (Hospitalization)
  Sender: FDA-Public Use
  Company Number: CA-MACLEODS PHARMACEUTICALS US LTD-MAC2014001052

PATIENT
  Sex: 0

DRUGS (2)
  1. ESCITALOPRAM OXALATE [Suspect]
     Indication: EXPOSURE DURING BREAST FEEDING
     Dosage: UNK
     Route: 048
  2. BUPROPION XL [Suspect]
     Indication: EXPOSURE DURING BREAST FEEDING
     Dosage: UNK
     Route: 048

REACTIONS (3)
  - Drug interaction [Recovered/Resolved]
  - Tonic convulsion [Recovered/Resolved]
  - Vomiting [Recovered/Resolved]
